FAERS Safety Report 14540937 (Version 1)
Quarter: 2018Q1

REPORT INFORMATION
  Report Type: Spontaneous
  Country: US (occurrence: US)
  Receive Date: 20180216
  Receipt Date: 20180216
  Transmission Date: 20180509
  Serious: Yes (Life-Threatening, Hospitalization, Other)
  Sender: FDA-Public Use
  Company Number: US-OTSUKA-DJ20081388

PATIENT

DRUGS (1)
  1. ABILIFY [Suspect]
     Active Substance: ARIPIPRAZOLE
     Indication: BIPOLAR DISORDER
     Route: 048
     Dates: start: 20080222, end: 20080306

REACTIONS (3)
  - Upper limb fracture [Unknown]
  - Neuroleptic malignant syndrome [Unknown]
  - Seizure [Unknown]

NARRATIVE: CASE EVENT DATE: 200803
